FAERS Safety Report 6391455-4 (Version None)
Quarter: 2009Q4

REPORT INFORMATION
  Report Type: 
  Country: None (occurrence: None)
  Receive Date: 20091007
  Receipt Date: 20090930
  Transmission Date: 20100525
  Serious: Yes (Death, Life-Threatening, Hospitalization)
  Sender: FDA-Public Use
  Company Number: JP-BRISTOL-MYERS SQUIBB COMPANY-14627426

PATIENT
  Age: 59 Year
  Sex: Male

DRUGS (21)
  1. SPRYCEL [Suspect]
     Indication: ACUTE LYMPHOCYTIC LEUKAEMIA
     Route: 048
     Dates: start: 20090330, end: 20090407
  2. SULFAMETHOXAZOLE AND TRIMETHOPRIM [Concomitant]
     Indication: PROPHYLAXIS
     Dosage: 1 DOSAGE FORM = 1 TAB
     Route: 048
  3. ALLOPURINOL [Concomitant]
     Indication: PROPHYLAXIS
     Route: 048
     Dates: end: 20090408
  4. POTASSIUM CITRATE [Concomitant]
     Indication: PROPHYLAXIS
     Dosage: 1 DOSAGE FORM = 3 TABS
     Route: 048
     Dates: end: 20090408
  5. SODIUM CITRATE [Concomitant]
     Dates: end: 20090408
  6. ETIZOLAM [Concomitant]
     Route: 048
  7. PREDNISOLONE [Concomitant]
     Route: 042
  8. SODIUM CHLORIDE [Concomitant]
     Route: 042
  9. CHLORPHENIRAMINE MALEATE [Concomitant]
     Route: 042
  10. HYDROCORTISONE SODIUM SUCCINATE [Concomitant]
     Route: 042
  11. INSULIN HUMAN [Concomitant]
     Route: 058
  12. FURSULTIAMINE [Concomitant]
     Route: 048
     Dates: end: 20090408
  13. FUROSEMIDE [Concomitant]
     Route: 048
  14. DANAPAROID SODIUM [Concomitant]
  15. VITAMIN B1 TAB [Concomitant]
     Route: 042
  16. METOCLOPRAMIDE HCL [Concomitant]
     Route: 042
     Dates: end: 20090408
  17. NEUPOGEN [Concomitant]
     Route: 048
     Dates: end: 20090420
  18. MEROPENEM [Concomitant]
     Route: 042
     Dates: end: 20090330
  19. VORICONAZOLE [Concomitant]
     Route: 042
     Dates: end: 20090330
  20. FAMOTIDINE [Concomitant]
     Route: 048
  21. MINOCYCLINE HCL [Concomitant]
     Route: 042
     Dates: end: 20090330

REACTIONS (9)
  - BLOOD GLUCOSE INCREASED [None]
  - DECREASED APPETITE [None]
  - DISSEMINATED INTRAVASCULAR COAGULATION [None]
  - GASTROINTESTINAL MUCOSAL DISORDER [None]
  - GENERALISED OEDEMA [None]
  - NEUROPATHY PERIPHERAL [None]
  - PANCYTOPENIA [None]
  - SEPSIS [None]
  - SOMNOLENCE [None]
